FAERS Safety Report 19720615 (Version 1)
Quarter: 2021Q3

REPORT INFORMATION
  Report Type: Other
  Country: CA (occurrence: CA)
  Receive Date: 20210819
  Receipt Date: 20210819
  Transmission Date: 20211014
  Serious: Yes (Death)
  Sender: FDA-Public Use
  Company Number: CA-PFIZER INC-202101013244

PATIENT
  Age: 14 Year
  Sex: Male

DRUGS (3)
  1. ETOPOSIDE. [Suspect]
     Active Substance: ETOPOSIDE
     Indication: EXTRAGONADAL PRIMARY GERM CELL TUMOUR
     Dosage: UNK
     Route: 065
  2. BLEOMYCIN SULFATE [Suspect]
     Active Substance: BLEOMYCIN SULFATE
     Indication: EXTRAGONADAL PRIMARY GERM CELL TUMOUR
     Dosage: UNK
     Route: 065
  3. CISPLATIN. [Suspect]
     Active Substance: CISPLATIN
     Indication: EXTRAGONADAL PRIMARY GERM CELL TUMOUR
     Dosage: UNK
     Route: 065

REACTIONS (2)
  - Myelosuppression [Fatal]
  - Myelodysplastic syndrome [Fatal]
